FAERS Safety Report 8459751-4 (Version None)
Quarter: 2012Q2

REPORT INFORMATION
  Report Type: 
  Country: None (occurrence: None)
  Receive Date: 20120622
  Receipt Date: 20120613
  Transmission Date: 20120825
  Serious: Yes (Hospitalization, Other)
  Sender: FDA-Public Use
  Company Number: US-MERCK-1201USA01084

PATIENT
  Age: 65 Year
  Sex: Female
  Weight: 68 kg

DRUGS (13)
  1. FERREX [Concomitant]
     Route: 065
     Dates: start: 20010101
  2. SPIRIVA [Concomitant]
     Route: 065
     Dates: start: 20070101
  3. FORTEO [Suspect]
     Route: 065
  4. ALLOPURINOL [Concomitant]
     Route: 065
     Dates: start: 19800101
  5. FOSAMAX [Suspect]
     Route: 048
     Dates: start: 20080307, end: 20100616
  6. ALENDRONATE SODIUM [Suspect]
     Indication: OSTEOPOROSIS
     Route: 048
     Dates: start: 20100601, end: 20101201
  7. ZOCOR [Concomitant]
     Route: 048
     Dates: start: 19810101
  8. FAMOTIDINE [Concomitant]
     Route: 048
     Dates: start: 19810101
  9. TOPROL-XL [Concomitant]
     Route: 065
     Dates: start: 19810101
  10. VITAMINS (UNSPECIFIED) [Concomitant]
     Route: 065
     Dates: start: 19970101
  11. FOSAMAX [Suspect]
     Indication: OSTEOPOROSIS
     Route: 048
     Dates: start: 20020101, end: 20061201
  12. PROCARDIA [Concomitant]
     Route: 065
     Dates: start: 19810101
  13. ADVAIR DISKUS 100/50 [Concomitant]
     Route: 065
     Dates: start: 20070101

REACTIONS (26)
  - INTERVERTEBRAL DISC PROTRUSION [None]
  - LIPIDS INCREASED [None]
  - ANAEMIA [None]
  - RENAL FAILURE CHRONIC [None]
  - SPINAL COLUMN STENOSIS [None]
  - IDIOPATHIC THROMBOCYTOPENIC PURPURA [None]
  - DIABETES MELLITUS [None]
  - OSTEOPENIA [None]
  - ILIOTIBIAL BAND SYNDROME [None]
  - DIVERTICULUM [None]
  - FEMORAL NECK FRACTURE [None]
  - OSTEOARTHRITIS [None]
  - IMPAIRED GASTRIC EMPTYING [None]
  - FEMUR FRACTURE [None]
  - NERVE COMPRESSION [None]
  - BLOOD CHOLESTEROL INCREASED [None]
  - SPINAL OSTEOARTHRITIS [None]
  - PUBIS FRACTURE [None]
  - KNEE DEFORMITY [None]
  - INCORRECT DOSE ADMINISTERED [None]
  - ACOUSTIC NEUROMA [None]
  - ARTHRITIS [None]
  - FALL [None]
  - PELVIC FRACTURE [None]
  - PROTEINURIA [None]
  - BACK PAIN [None]
